FAERS Safety Report 9025245 (Version 2)
Quarter: 2013Q2

REPORT INFORMATION
  Report Type: Spontaneous
  Country: FR (occurrence: FR)
  Receive Date: 20130122
  Receipt Date: 20130415
  Transmission Date: 20140414
  Serious: Yes (Death, Other)
  Sender: FDA-Public Use
  Company Number: FR-ASTRAZENECA-2013SE04249

PATIENT
  Age: 2750 Week
  Sex: Male

DRUGS (6)
  1. DIPRIVAN [Suspect]
     Route: 042
     Dates: start: 20121128
  2. CELOCURINE [Suspect]
     Route: 042
     Dates: start: 20121128
  3. PIPERACILLINE [Suspect]
     Route: 042
     Dates: start: 20121128
  4. SUFENTA [Suspect]
     Route: 042
     Dates: start: 20121128
  5. ATRACURIUM [Suspect]
     Route: 042
     Dates: start: 20121128
  6. PLATELET CONCENTRATE [Concomitant]

REACTIONS (6)
  - Anaphylactic shock [Fatal]
  - Hypotension [Fatal]
  - Oxygen saturation decreased [Fatal]
  - Acute respiratory failure [Fatal]
  - Viral infection [Fatal]
  - Multi-organ failure [Fatal]
